FAERS Safety Report 10609329 (Version 4)
Quarter: 2015Q4

REPORT INFORMATION
  Report Type: Spontaneous
  Country: US (occurrence: US)
  Receive Date: 20141126
  Receipt Date: 20151029
  Transmission Date: 20160304
  Serious: No
  Sender: FDA-Public Use
  Company Number: US-BIOGENIDEC-2014BI121745

PATIENT
  Age: 47 Year
  Sex: Male

DRUGS (1)
  1. AVONEX [Suspect]
     Active Substance: INTERFERON BETA-1A
     Indication: MULTIPLE SCLEROSIS
     Route: 030
     Dates: start: 20131122, end: 20141020

REACTIONS (8)
  - Depression [Recovered/Resolved]
  - Adverse event [Unknown]
  - Drug ineffective [Unknown]
  - Suicidal ideation [Recovered/Resolved]
  - Central nervous system lesion [Unknown]
  - Influenza like illness [Recovered/Resolved]
  - Drug intolerance [Unknown]
  - Drug hypersensitivity [Not Recovered/Not Resolved]

NARRATIVE: CASE EVENT DATE: 20131122
